FAERS Safety Report 26091602 (Version 2)
Quarter: 2025Q4

REPORT INFORMATION
  Report Type: Report from Study
  Country: BR (occurrence: BR)
  Receive Date: 20251126
  Receipt Date: 20251230
  Transmission Date: 20260117
  Serious: Yes (Other)
  Sender: JOHNSON AND JOHNSON
  Company Number: BR-JNJFOC-20250821181

PATIENT
  Age: 69 Year
  Sex: Female
  Weight: 62 kg

DRUGS (9)
  1. TALVEY [Suspect]
     Active Substance: TALQUETAMAB-TGVS
     Indication: Plasma cell myeloma
     Route: 058
  2. TALVEY [Suspect]
     Active Substance: TALQUETAMAB-TGVS
     Dosage: LAST DOSE ADMINISTERED ON 14-AUG-2025, 6-NOV-2025
     Route: 058
  3. ENALAPRIL [Concomitant]
     Active Substance: ENALAPRIL
     Indication: Product used for unknown indication
  4. DECADRON [Concomitant]
     Active Substance: DEXAMETHASONE
     Indication: Product used for unknown indication
  5. MORPHINE [Concomitant]
     Active Substance: MORPHINE
     Indication: Product used for unknown indication
  6. PREGABALIN [Concomitant]
     Active Substance: PREGABALIN
     Indication: Product used for unknown indication
  7. IMMUNOGLOBULINS [Concomitant]
     Indication: Product used for unknown indication
  8. CORTISONE [Concomitant]
     Active Substance: CORTISONE
     Indication: Product used for unknown indication
  9. PROFINA [Concomitant]
     Indication: Product used for unknown indication

REACTIONS (23)
  - Choking [Recovered/Resolved]
  - Pancytopenia [Unknown]
  - Plasma cell myeloma [Recovering/Resolving]
  - Compression fracture [Unknown]
  - Taste disorder [Recovering/Resolving]
  - Nail disorder [Recovering/Resolving]
  - Skin papilloma [Not Recovered/Not Resolved]
  - Skin lesion [Recovering/Resolving]
  - Light chain analysis increased [Recovering/Resolving]
  - Haemoglobin decreased [Recovering/Resolving]
  - Seborrhoeic keratosis [Not Recovered/Not Resolved]
  - Dry skin [Not Recovered/Not Resolved]
  - Headache [Recovering/Resolving]
  - Pyrexia [Recovered/Resolved]
  - Dry mouth [Not Recovered/Not Resolved]
  - Influenza [Unknown]
  - Sensitive skin [Not Recovered/Not Resolved]
  - Onychomadesis [Not Recovered/Not Resolved]
  - Skin exfoliation [Not Recovered/Not Resolved]
  - Weight increased [Recovering/Resolving]
  - Sinusitis [Not Recovered/Not Resolved]
  - Haemoglobin increased [Unknown]
  - Mucosal inflammation [Unknown]
